FAERS Safety Report 20764992 (Version 1)
Quarter: 2022Q2

REPORT INFORMATION
  Report Type: Spontaneous
  Country: US (occurrence: US)
  Receive Date: 20220428
  Receipt Date: 20220428
  Transmission Date: 20220721
  Serious: No
  Sender: FDA-Public Use
  Company Number: US-SA-SAC20220420001193

PATIENT
  Age: 24 Year
  Sex: Female

DRUGS (43)
  1. DUPIXENT [Suspect]
     Active Substance: DUPILUMAB
     Indication: Riley-Day syndrome
     Dosage: 300 MG, QOW
     Route: 058
     Dates: start: 202103
  2. DUPIXENT [Suspect]
     Active Substance: DUPILUMAB
     Indication: Rheumatoid arthritis
  3. DUPIXENT [Suspect]
     Active Substance: DUPILUMAB
     Indication: Rheumatoid factor
  4. DUPIXENT [Suspect]
     Active Substance: DUPILUMAB
     Indication: Dermatitis atopic
  5. DUPIXENT [Suspect]
     Active Substance: DUPILUMAB
     Indication: Dermatitis
  6. DUPIXENT [Suspect]
     Active Substance: DUPILUMAB
     Indication: Arrhythmia
  7. DUPIXENT [Suspect]
     Active Substance: DUPILUMAB
     Indication: Juvenile idiopathic arthritis
  8. DUPIXENT [Suspect]
     Active Substance: DUPILUMAB
     Indication: Autonomic neuropathy
  9. DROXIDOPA [Concomitant]
     Active Substance: DROXIDOPA
  10. TOPAMAX [Concomitant]
     Active Substance: TOPIRAMATE
  11. REGULOID [Concomitant]
     Active Substance: PSYLLIUM HUSK
  12. ALPRAZOLAM [Concomitant]
     Active Substance: ALPRAZOLAM
  13. MIDODRINE HYDROCHLORIDE [Concomitant]
     Active Substance: MIDODRINE HYDROCHLORIDE
  14. PREDNISONE [Concomitant]
     Active Substance: PREDNISONE
  15. ZINC [Concomitant]
     Active Substance: ZINC
  16. DICLOFENAC [Concomitant]
     Active Substance: DICLOFENAC
  17. CLONIDINE HYDROCHLORIDE [Concomitant]
     Active Substance: CLONIDINE HYDROCHLORIDE
  18. AMLODIPINE BESYLATE [Concomitant]
     Active Substance: AMLODIPINE BESYLATE
  19. RIBOFLAVIN 5^-PHOSPHATE SODIUM [Concomitant]
     Active Substance: RIBOFLAVIN 5^-PHOSPHATE SODIUM
  20. VITAMIN D2 [Concomitant]
     Active Substance: ERGOCALCIFEROL
     Dosage: 10 MCG
  21. PANTOPRAZOLE SODIUM [Concomitant]
     Active Substance: PANTOPRAZOLE SODIUM
  22. METOPROLOL SUCCINATE [Concomitant]
     Active Substance: METOPROLOL SUCCINATE
  23. KETOTIFEN FUMARATE [Concomitant]
     Active Substance: KETOTIFEN FUMARATE
  24. KETAMINE HYDROCHLORIDE [Concomitant]
     Active Substance: KETAMINE HYDROCHLORIDE
  25. IRON [Concomitant]
     Active Substance: IRON
  26. EMGALITY [Concomitant]
     Active Substance: GALCANEZUMAB-GNLM
  27. CROMOLYN SODIUM [Concomitant]
     Active Substance: CROMOLYN SODIUM
     Route: 048
  28. BENADRYL [Concomitant]
     Active Substance: DIPHENHYDRAMINE HYDROCHLORIDE
  29. GABAPENTIN [Concomitant]
     Active Substance: GABAPENTIN
  30. CORLANOR [Concomitant]
     Active Substance: IVABRADINE HYDROCHLORIDE
  31. COLACE [Concomitant]
     Active Substance: DOCUSATE SODIUM
  32. SUMATRIPTAN SUCCINATE [Concomitant]
     Active Substance: SUMATRIPTAN SUCCINATE
  33. TYLENOL [Concomitant]
     Active Substance: ACETAMINOPHEN
  34. LEVOTHYROXINE SODIUM [Concomitant]
     Active Substance: LEVOTHYROXINE SODIUM
     Dosage: 150 MCG
  35. METHOTREXATE [Concomitant]
     Active Substance: METHOTREXATE
  36. SINGULAIR [Concomitant]
     Active Substance: MONTELUKAST SODIUM
  37. SENNA LEAF [Concomitant]
     Active Substance: SENNA LEAF
  38. BIFIDOBACTERIUM ANIMALIS LACTIS [Concomitant]
     Active Substance: BIFIDOBACTERIUM ANIMALIS LACTIS
     Dosage: 10B CELL
  39. LO LOESTRIN FE [Concomitant]
     Active Substance: ETHINYL ESTRADIOL\NORETHINDRONE ACETATE
     Dosage: 1 5-30(21)
  40. MAGNESIUM [Concomitant]
     Active Substance: MAGNESIUM
  41. METHOCARBAMOL [Concomitant]
     Active Substance: METHOCARBAMOL
  42. SODIUM CHLORIDE [Concomitant]
     Active Substance: SODIUM CHLORIDE
     Route: 042
  43. CYMBALTA [Concomitant]
     Active Substance: DULOXETINE HYDROCHLORIDE

REACTIONS (2)
  - Skin exfoliation [Unknown]
  - Product use in unapproved indication [Unknown]
